FAERS Safety Report 17765516 (Version 1)
Quarter: 2020Q2

REPORT INFORMATION
  Report Type: Spontaneous
  Country: US (occurrence: US)
  Receive Date: 20200508
  Receipt Date: 20200508
  Transmission Date: 20200714
  Serious: Yes (Hospitalization)
  Sender: FDA-Public Use
  Company Number: None

PATIENT
  Age: 69 Year
  Sex: Male

DRUGS (1)
  1. ZYTIGA [Suspect]
     Active Substance: ABIRATERONE ACETATE
     Route: 048
     Dates: start: 202005

REACTIONS (7)
  - Groin abscess [None]
  - Fluid retention [None]
  - Complication associated with device [None]
  - Groin infection [None]
  - Fatigue [None]
  - Catheter removal [None]
  - Night sweats [None]

NARRATIVE: CASE EVENT DATE: 20200503
